FAERS Safety Report 6912692-3 (Version None)
Quarter: 2010Q3

REPORT INFORMATION
  Report Type: 
  Country: None (occurrence: None)
  Receive Date: 20100806
  Receipt Date: 20081009
  Transmission Date: 20110219
  Serious: No
  Sender: FDA-Public Use
  Company Number: US-PFIZER INC-2008084154

PATIENT
  Sex: Male

DRUGS (2)
  1. DETROL LA [Suspect]
     Indication: ENURESIS
     Dates: start: 20070801
  2. XALATAN [Concomitant]
     Indication: GLAUCOMA

REACTIONS (1)
  - DRUG INEFFECTIVE [None]
